FAERS Safety Report 4565609-3 (Version None)
Quarter: 2005Q1

REPORT INFORMATION
  Report Type: 
  Country: None (occurrence: None)
  Receive Date: 20050126
  Receipt Date: 20050114
  Transmission Date: 20050727
  Serious: No
  Sender: FDA-Public Use
  Company Number: US_0501109724

PATIENT
  Age: 32 Year

DRUGS (7)
  1. ZYPREXA [Suspect]
     Indication: DEPRESSION
     Dosage: 10 MG/1 AT BEDTIME
     Dates: start: 20010801
  2. EFFEXOR [Concomitant]
  3. ATENOLOL [Concomitant]
  4. AMITRIPTYLINE [Concomitant]
  5. ASPIRIN (CCETYLSALICYLIC ACID) [Concomitant]
  6. GLUCOPHAGE [Concomitant]
  7. SEROQUEL [Concomitant]

REACTIONS (10)
  - ALANINE AMINOTRANSFERASE INCREASED [None]
  - ASPARTATE AMINOTRANSFERASE INCREASED [None]
  - BLOOD CHOLESTEROL INCREASED [None]
  - BLOOD TRIGLYCERIDES INCREASED [None]
  - BLOOD URINE [None]
  - DIABETES MELLITUS NON-INSULIN-DEPENDENT [None]
  - GLUCOSE URINE [None]
  - HIGH DENSITY LIPOPROTEIN INCREASED [None]
  - PROTEIN URINE [None]
  - UPPER RESPIRATORY TRACT INFECTION [None]
